FAERS Safety Report 8030373-2 (Version None)
Quarter: 2012Q1

REPORT INFORMATION
  Report Type: 
  Country: None (occurrence: None)
  Receive Date: 20120109
  Receipt Date: 20120109
  Transmission Date: 20120608
  Serious: Yes (Life-Threatening, Hospitalization)
  Sender: FDA-Public Use
  Company Number: None

PATIENT
  Age: 77 Year
  Sex: Male
  Weight: 80 kg

DRUGS (1)
  1. ALTEPLASE(ACTIVASE) [Suspect]
     Indication: ISCHAEMIC STROKE
     Dosage: 72 MG
     Route: 042
     Dates: start: 20120103, end: 20120103

REACTIONS (5)
  - CARDIO-RESPIRATORY ARREST [None]
  - INTRAVENTRICULAR HAEMORRHAGE [None]
  - BRAIN MIDLINE SHIFT [None]
  - CEREBRAL HAEMATOMA [None]
  - VASOGENIC CEREBRAL OEDEMA [None]
